FAERS Safety Report 9388902 (Version 2)
Quarter: 2013Q4

REPORT INFORMATION
  Report Type: Spontaneous
  Country: FR (occurrence: FR)
  Receive Date: 20130708
  Receipt Date: 20131022
  Transmission Date: 20140711
  Serious: Yes (Life-Threatening, Other)
  Sender: FDA-Public Use
  Company Number: FR-JNJFOC-20130701109

PATIENT
  Sex: Female

DRUGS (4)
  1. XARELTO [Suspect]
     Indication: AORTIC VALVE DISEASE
     Dosage: 15 OR 20 MG
     Route: 048
  2. XARELTO [Suspect]
     Indication: CEREBROVASCULAR ACCIDENT PROPHYLAXIS
     Dosage: 15 OR 20 MG
     Route: 048
  3. XARELTO [Suspect]
     Indication: ATRIAL FIBRILLATION
     Dosage: 15 OR 20 MG
     Route: 048
  4. NOROXIN [Concomitant]
     Indication: CAROTID ARTERY OCCLUSION
     Route: 065
     Dates: start: 20130220

REACTIONS (3)
  - Carotid artery occlusion [Unknown]
  - Transient ischaemic attack [Unknown]
  - Vertigo [Unknown]
